FAERS Safety Report 6911132-8 (Version None)
Quarter: 2010Q3

REPORT INFORMATION
  Report Type: 
  Country: None (occurrence: None)
  Receive Date: 20100716
  Receipt Date: 20090224
  Transmission Date: 20110219
  Serious: Yes (Hospitalization, Other)
  Sender: FDA-Public Use
  Company Number: 2009160947

PATIENT
  Age: 59 Year
  Sex: Male

DRUGS (2)
  1. CELEBREX [Suspect]
     Indication: PAIN MANAGEMENT
     Dosage: ORAL
     Route: 048
  2. BEXTRA [Suspect]
     Indication: PAIN MANAGEMENT
     Dosage: ORAL

REACTIONS (1)
  - ACUTE MYOCARDIAL INFARCTION [None]
